FAERS Safety Report 10439760 (Version 1)
Quarter: 2014Q3

REPORT INFORMATION
  Report Type: Spontaneous
  Country: US (occurrence: US)
  Receive Date: 20140908
  Receipt Date: 20140908
  Transmission Date: 20150326
  Serious: No
  Sender: FDA-Public Use
  Company Number: US-BRISTOL-MYERS SQUIBB COMPANY-20008165

PATIENT
  Age: 65 Year
  Sex: Female

DRUGS (1)
  1. ABILIFY [Suspect]
     Active Substance: ARIPIPRAZOLE
     Indication: BIPOLAR DISORDER
     Dosage: 1 DF = 1/2 TABS FOR 3 DAYS
     Route: 048

REACTIONS (6)
  - Asthenia [Unknown]
  - Dystonia [Unknown]
  - Tardive dyskinesia [Unknown]
  - Lethargy [Unknown]
  - Throat tightness [Unknown]
  - Dyskinesia [Unknown]
